FAERS Safety Report 4749500-5 (Version None)
Quarter: 2005Q3

REPORT INFORMATION
  Report Type: 
  Country: None (occurrence: None)
  Receive Date: 20050819
  Receipt Date: 20050801
  Transmission Date: 20060218
  Serious: Yes (Other)
  Sender: FDA-Public Use
  Company Number: TRP_0238_2005

PATIENT
  Age: 51 Year
  Sex: Male

DRUGS (7)
  1. RIBASPHERE [Suspect]
     Indication: HEPATITIS C
     Dosage: DF PO
     Route: 048
     Dates: start: 20050104
  2. PEG-INTRON [Suspect]
     Indication: HEPATITIS C
     Dosage: DF SC
     Route: 058
     Dates: start: 20050104
  3. EPIVIR [Concomitant]
  4. GEMFIBROZIL [Concomitant]
  5. RESTORIL [Concomitant]
  6. SUSTIVA [Concomitant]
  7. ZERIT [Concomitant]

REACTIONS (3)
  - ANGER [None]
  - MARITAL PROBLEM [None]
  - PARANOIA [None]
